FAERS Safety Report 5460077-1 (Version None)
Quarter: 2007Q3

REPORT INFORMATION
  Report Type: 
  Country: None (occurrence: None)
  Receive Date: 20070820
  Receipt Date: 20060315
  Transmission Date: 20080115
  Serious: No
  Sender: FDA-Public Use
  Company Number: TPA2006A00465

PATIENT

DRUGS (2)
  1. ROZEREM [Suspect]
     Dosage: PER ORAL
     Route: 048
  2. RAZADYNE [Suspect]

REACTIONS (1)
  - DRUG DISPENSING ERROR [None]
